FAERS Safety Report 21377365 (Version 3)
Quarter: 2022Q4

REPORT INFORMATION
  Report Type: Spontaneous
  Country: US (occurrence: US)
  Receive Date: 20220926
  Receipt Date: 20221006
  Transmission Date: 20230113
  Serious: Yes (Other)
  Sender: FDA-Public Use
  Company Number: US-INSUD PHARMA-2203US01109

PATIENT
  Sex: Female

DRUGS (7)
  1. VRAYLAR [Interacting]
     Active Substance: CARIPRAZINE
     Indication: Product used for unknown indication
  2. LUVOX [Suspect]
     Active Substance: FLUVOXAMINE MALEATE
     Indication: Product used for unknown indication
     Dosage: UNKNOWN
  3. SUBOXONE [Suspect]
     Active Substance: BUPRENORPHINE HYDROCHLORIDE\NALOXONE HYDROCHLORIDE
     Indication: Product used for unknown indication
     Dosage: UNKNOWN
  4. ESTARYLLA [Suspect]
     Active Substance: ETHINYL ESTRADIOL\NORGESTIMATE
     Indication: Product used for unknown indication
     Dosage: UNKNOWN
  5. SYNTHROID [Suspect]
     Active Substance: LEVOTHYROXINE SODIUM
     Indication: Product used for unknown indication
     Dosage: UNKNOWN
  6. ABILIFY [Suspect]
     Active Substance: ARIPIPRAZOLE
     Indication: Product used for unknown indication
     Dosage: UNKNOWN
  7. EPCLUSA [Suspect]
     Active Substance: SOFOSBUVIR\VELPATASVIR
     Indication: Product used for unknown indication
     Dosage: UNKNOWN

REACTIONS (3)
  - Encephalopathy [Unknown]
  - Drug interaction [Unknown]
  - Unevaluable event [Unknown]
